FAERS Safety Report 6216670-1 (Version None)
Quarter: 2009Q2

REPORT INFORMATION
  Report Type: 
  Country: None (occurrence: None)
  Receive Date: 20090604
  Receipt Date: 20090604
  Transmission Date: 20091009
  Serious: No
  Sender: FDA-Public Use
  Company Number: None

PATIENT

DRUGS (5)
  1. ACTOS [Suspect]
  2. AVANDIA [Suspect]
  3. GLUCOPHAGE [Suspect]
  4. GENERIC METFORMIN/METFORMIN XR [Suspect]
  5. JANUVIA [Suspect]

REACTIONS (3)
  - DRUG INTOLERANCE [None]
  - GLYCOSYLATED HAEMOGLOBIN INCREASED [None]
  - PRODUCT SUBSTITUTION ISSUE [None]
